FAERS Safety Report 5521229-5 (Version None)
Quarter: 2007Q4

REPORT INFORMATION
  Report Type: 
  Country: None (occurrence: None)
  Receive Date: 20071119
  Receipt Date: 20071108
  Transmission Date: 20080405
  Serious: Yes (Hospitalization, Disabling)
  Sender: FDA-Public Use
  Company Number: JP-ASTRAZENECA-2007AP07193

PATIENT
  Age: 80 Year
  Sex: Male

DRUGS (12)
  1. OMEPRAL [Suspect]
     Indication: GASTRIC ULCER
     Route: 048
     Dates: start: 20070921, end: 20071016
  2. ADALAT [Concomitant]
     Route: 048
     Dates: start: 20070301, end: 20071016
  3. RYTHMODAN R [Concomitant]
     Route: 048
     Dates: start: 20070301, end: 20071016
  4. PLAVIX [Concomitant]
     Route: 048
     Dates: start: 20070301, end: 20071016
  5. ALDACTONE [Concomitant]
     Route: 048
     Dates: start: 20070301, end: 20071016
  6. ASPIRIN [Concomitant]
     Route: 048
     Dates: start: 20070301, end: 20071010
  7. ARTIST [Concomitant]
     Route: 048
     Dates: start: 20070301, end: 20071010
  8. EPADEL [Concomitant]
     Route: 048
     Dates: start: 20070301, end: 20071010
  9. MAGNESIUM OXIDE [Concomitant]
     Route: 048
     Dates: start: 20070301, end: 20071010
  10. MARZULENE [Concomitant]
     Route: 048
     Dates: start: 20070301, end: 20071010
  11. DIOVAN [Concomitant]
     Route: 048
     Dates: start: 20070301, end: 20071010
  12. VESICARE [Concomitant]
     Route: 048
     Dates: start: 20070301, end: 20071010

REACTIONS (2)
  - ALTERED STATE OF CONSCIOUSNESS [None]
  - INAPPROPRIATE ANTIDIURETIC HORMONE SECRETION [None]
